FAERS Safety Report 24667202 (Version 1)
Quarter: 2024Q4

REPORT INFORMATION
  Report Type: Report from Study
  Country: US (occurrence: US)
  Receive Date: 20241126
  Receipt Date: 20241126
  Transmission Date: 20250115
  Serious: No
  Sender: Day One Biopharmaceuticals
  Company Number: US-Day One Biopharmaceuticals Inc.-2024US001187

PATIENT

DRUGS (1)
  1. OJEMDA [Suspect]
     Active Substance: TOVORAFENIB
     Indication: Brain neoplasm malignant
     Dosage: 1 TABLET, WEEKLY
     Route: 048
     Dates: start: 2024

REACTIONS (1)
  - Accidental underdose [Recovering/Resolving]

NARRATIVE: CASE EVENT DATE: 20240101
